FAERS Safety Report 4408547-9 (Version None)
Quarter: 2004Q3

REPORT INFORMATION
  Report Type: 
  Country: None (occurrence: None)
  Receive Date: 20040722
  Receipt Date: 20040713
  Transmission Date: 20050211
  Serious: Yes (Other)
  Sender: FDA-Public Use
  Company Number: 2004-07-0540

PATIENT
  Age: 63 Year
  Sex: Female

DRUGS (1)
  1. NITRO-DUR [Suspect]
     Indication: ANGINA PECTORIS
     Dosage: 4.8 MG QD TRANSDERMAL
     Route: 062
     Dates: start: 20030101

REACTIONS (6)
  - ASTHENIA [None]
  - EPISTAXIS [None]
  - FATIGUE [None]
  - FEELING ABNORMAL [None]
  - PHARMACEUTICAL PRODUCT COMPLAINT [None]
  - PULSE ABSENT [None]
